FAERS Safety Report 18246819 (Version 1)
Quarter: 2020Q3

REPORT INFORMATION
  Report Type: Spontaneous
  Country: FR (occurrence: FR)
  Receive Date: 20200909
  Receipt Date: 20200909
  Transmission Date: 20201103
  Serious: Yes (Hospitalization)
  Sender: FDA-Public Use
  Company Number: FR-CADILA HEALTHCARE LIMITED-FR-ZYDUS-024694

PATIENT

DRUGS (7)
  1. KARDEGIC [Suspect]
     Active Substance: ASPIRIN DL-LYSINE
     Indication: PROPHYLAXIS
     Dosage: 1 DOSAGE FORM,(INTERVAL :1 DAYS)
     Route: 048
  2. PREVISCAN (FRANCE) [Suspect]
     Active Substance: FLUINDIONE
     Indication: ATRIAL FIBRILLATION
     Dosage: .75 DOSAGE FORM,(INTERVAL :1 DAYS)
     Route: 048
  3. PRAVASTATINE [Concomitant]
     Active Substance: PRAVASTATIN
     Indication: PROPHYLAXIS
     Dosage: 20 MILLIGRAM,(INTERVAL :1 DAYS)
     Route: 048
  4. ATENOLOL. [Suspect]
     Active Substance: ATENOLOL
     Indication: ATRIAL FIBRILLATION
     Dosage: 25 MILLIGRAM,ATENOLOL 50: 1/2 IN THE MORNING,(INTERVAL :1 DAYS)
     Route: 048
  5. HYDROCHLOROTHIAZIDE. [Concomitant]
     Active Substance: HYDROCHLOROTHIAZIDE
     Indication: HYPERTENSION
     Dosage: 25 MILLIGRAM,HYDROCHLOROTHIAZIDE IN COMBINATION WITH VALSARTAN,(INTERVAL :1 DAYS)
     Route: 048
  6. VALSARTAN. [Concomitant]
     Active Substance: VALSARTAN
     Indication: HYPERTENSION
     Dosage: 160 MILLIGRAM,VALSARTAN IN COMBINATION WITH HYDROCHLOROTHIAZIDE,(INTERVAL :1 DAYS)
     Route: 048
  7. LOXEN [Concomitant]
     Indication: HYPERTENSION
     Dosage: 2 DOSAGE FORM,(INTERVAL :1 DAYS)
     Route: 048

REACTIONS (3)
  - Anaemia [Recovering/Resolving]
  - Melaena [Recovered/Resolved]
  - Oesophageal haemorrhage [Recovered/Resolved]

NARRATIVE: CASE EVENT DATE: 20180422
